FAERS Safety Report 10244805 (Version 1)
Quarter: 2014Q2

REPORT INFORMATION
  Report Type: Spontaneous
  Country: BR (occurrence: BR)
  Receive Date: 20140618
  Receipt Date: 20140618
  Transmission Date: 20141212
  Serious: Yes (Hospitalization)
  Sender: FDA-Public Use
  Company Number: BR-ASTRAZENECA-2014SE44223

PATIENT
  Age: 68 Year
  Sex: Female

DRUGS (12)
  1. OMEPRAZOLE [Suspect]
     Indication: ACUTE MYOCARDIAL INFARCTION
     Route: 048
     Dates: start: 201012
  2. LEFLUNOMIDE [Suspect]
     Indication: RHEUMATOID ARTHRITIS
     Dates: start: 201001, end: 2011
  3. LEFLUNOMIDE [Suspect]
     Indication: SYNOVITIS
     Dates: start: 201001, end: 2011
  4. METHOTREXATE [Interacting]
     Indication: RHEUMATOID ARTHRITIS
     Dates: start: 200801, end: 201001
  5. METHOTREXATE [Interacting]
     Indication: RHEUMATOID ARTHRITIS
     Dates: start: 201001, end: 2011
  6. ASA [Interacting]
     Indication: ACUTE MYOCARDIAL INFARCTION
     Dates: start: 201012
  7. CLOPIDOGREL [Concomitant]
     Indication: ACUTE MYOCARDIAL INFARCTION
     Dates: start: 201012
  8. ISOSORBIDE [Concomitant]
     Indication: ACUTE MYOCARDIAL INFARCTION
     Dates: start: 201012
  9. SIMVASTATIN [Concomitant]
     Indication: ACUTE MYOCARDIAL INFARCTION
     Dates: start: 201012
  10. PREDNISONE [Concomitant]
     Indication: SYNOVITIS
     Dates: start: 201001, end: 2011
  11. PREDNISONE [Concomitant]
     Indication: SYNOVITIS
     Dates: start: 2011, end: 2011
  12. PREDNISONE [Concomitant]
     Indication: SYNOVITIS
     Dates: start: 2011

REACTIONS (2)
  - Labelled drug-drug interaction medication error [Unknown]
  - Leukopenia [Unknown]
